FAERS Safety Report 15227517 (Version 2)
Quarter: 2018Q3

REPORT INFORMATION
  Report Type: Spontaneous
  Country: IN (occurrence: IN)
  Receive Date: 20180801
  Receipt Date: 20180809
  Transmission Date: 20181010
  Serious: Yes (Death, Other)
  Sender: FDA-Public Use
  Company Number: IN-PFIZER INC-2018109346

PATIENT
  Age: 76 Year
  Sex: Male

DRUGS (1)
  1. SUTENT [Suspect]
     Active Substance: SUNITINIB MALATE
     Indication: METASTATIC RENAL CELL CARCINOMA
     Dosage: 25 MG, 1X/DAY
     Route: 048
     Dates: start: 20170506, end: 20180629

REACTIONS (4)
  - Pelvic fracture [Unknown]
  - Pulmonary oedema [Unknown]
  - Feeding disorder [Unknown]
  - Death [Fatal]

NARRATIVE: CASE EVENT DATE: 20180711
